FAERS Safety Report 21952195 (Version 1)
Quarter: 2023Q1

REPORT INFORMATION
  Report Type: Report from Study
  Country: IT (occurrence: IT)
  Receive Date: 20230203
  Receipt Date: 20230203
  Transmission Date: 20230418
  Serious: Yes (Hospitalization)
  Sender: FDA-Public Use
  Company Number: IT-PFIZER INC-2010139722

PATIENT
  Age: 71 Year
  Sex: Female
  Weight: 70 kg

DRUGS (7)
  1. GLASDEGIB [Suspect]
     Active Substance: GLASDEGIB
     Indication: Acute myeloid leukaemia
     Dosage: UNK
     Route: 048
     Dates: start: 20100617
  2. GLASDEGIB [Suspect]
     Active Substance: GLASDEGIB
     Dosage: 10 MG, 1X/DAY, CONTINUOUS
     Route: 048
     Dates: start: 20100628, end: 20101101
  3. ALLOPURINOL [Concomitant]
     Active Substance: ALLOPURINOL
     Indication: Prophylaxis
     Dosage: 300 MG, 1X/DAY
     Route: 048
     Dates: start: 20100108
  4. LANSOPRAZOLE [Concomitant]
     Active Substance: LANSOPRAZOLE
     Indication: Prophylaxis
     Dosage: 30 MG, 1X/DAY
     Route: 048
     Dates: start: 20100108
  5. ATENOLOL [Concomitant]
     Active Substance: ATENOLOL
     Indication: Hypertension
     Dosage: 25 MG, 1X/DAY
     Route: 048
     Dates: start: 20100108
  6. RAMIPRIL [Concomitant]
     Active Substance: RAMIPRIL
     Indication: Hypertension
     Dosage: 2.5 MG, 1X/DAY
     Route: 048
     Dates: start: 20100108
  7. PAROXETINE [Concomitant]
     Active Substance: PAROXETINE
     Indication: Depression
     Dosage: 20 MG, 1X/DAY
     Route: 048
     Dates: start: 20100108, end: 20101101

REACTIONS (1)
  - Gastritis haemorrhagic [Not Recovered/Not Resolved]

NARRATIVE: CASE EVENT DATE: 20101031
